FAERS Safety Report 8011758-7 (Version None)
Quarter: 2011Q4

REPORT INFORMATION
  Report Type: 
  Country: None (occurrence: None)
  Receive Date: 20111228
  Receipt Date: 20111219
  Transmission Date: 20120403
  Serious: Yes (Other)
  Sender: FDA-Public Use
  Company Number: PHHY2011US110739

PATIENT
  Age: 30 Year

DRUGS (3)
  1. AMIODARONE HCL [Suspect]
  2. METOPROLOL SUCCINATE [Suspect]
  3. DILTIAZEM HCL [Suspect]

REACTIONS (3)
  - OVERDOSE [None]
  - CARDIOVASCULAR DISORDER [None]
  - CARDIOGENIC SHOCK [None]
